FAERS Safety Report 5420808-3 (Version None)
Quarter: 2007Q3

REPORT INFORMATION
  Report Type: 
  Country: None (occurrence: None)
  Receive Date: 20070816
  Receipt Date: 20070720
  Transmission Date: 20080115
  Serious: Yes (Hospitalization)
  Sender: FDA-Public Use
  Company Number: 6036238

PATIENT
  Age: 75 Year
  Sex: Male

DRUGS (6)
  1. FLUCONAZOLE [Suspect]
     Indication: ORAL CANDIDIASIS
     Dosage: SINGLE DOSE (1 IN 1 ONCE) ORAL
     Route: 048
  2. PREDNISONE TAB [Concomitant]
  3. QUININE SULFATE [Concomitant]
  4. CARBIDOPA AND LEVODOPA [Concomitant]
  5. EPOETIN ALPFA (EPOETIN ALFA) [Concomitant]
  6. CALCIUM (CALCIUM) [Concomitant]

REACTIONS (1)
  - ACUTE GENERALISED EXANTHEMATOUS PUSTULOSIS [None]
